FAERS Safety Report 20556813 (Version 2)
Quarter: 2022Q1

REPORT INFORMATION
  Report Type: Spontaneous
  Country: IN (occurrence: IN)
  Receive Date: 20220307
  Receipt Date: 20220319
  Transmission Date: 20220423
  Serious: Yes (Life-Threatening, Hospitalization, Other)
  Sender: FDA-Public Use
  Company Number: IN-MLMSERVICE-20220223-3390474-1

PATIENT
  Age: 61 Year
  Sex: Male
  Weight: 55 kg

DRUGS (2)
  1. CISPLATIN [Suspect]
     Active Substance: CISPLATIN
     Indication: Hypopharyngeal cancer
     Route: 041
     Dates: start: 20190614
  2. FLUOROURACIL [Concomitant]
     Active Substance: FLUOROURACIL
     Indication: Hypopharyngeal cancer
     Dates: start: 201906

REACTIONS (4)
  - Renal salt-wasting syndrome [Recovered/Resolved]
  - Respiratory alkalosis [Recovered/Resolved]
  - Hyponatraemic encephalopathy [Recovered/Resolved]
  - Renal tubular injury [Recovered/Resolved]

NARRATIVE: CASE EVENT DATE: 20190617
